FAERS Safety Report 19870030 (Version 1)
Quarter: 2021Q3

REPORT INFORMATION
  Report Type: Report from Study
  Country: CN (occurrence: CN)
  Receive Date: 20210922
  Receipt Date: 20210922
  Transmission Date: 20211014
  Serious: Yes (Hospitalization)
  Sender: FDA-Public Use
  Company Number: CN-PFIZER INC-202101192521

PATIENT
  Age: 58 Year
  Sex: Male
  Weight: 48 kg

DRUGS (3)
  1. BO BEI [Suspect]
     Active Substance: CARBOPLATIN
     Indication: SQUAMOUS CELL CARCINOMA OF LUNG
     Dosage: 490 MG, 1X/3 WEEKS, INFUSION
     Route: 042
     Dates: start: 20210812, end: 20210812
  2. BLINDED THERAPY [Suspect]
     Active Substance: INVESTIGATIONAL PRODUCT
     Indication: SQUAMOUS CELL CARCINOMA OF LUNG
     Dosage: UNK UNK, INTRAVENOUS INFUSION, 1X/3 WEEKS
     Route: 042
     Dates: start: 20210812, end: 20210812
  3. ANZATAX (PACLITAXEL) [Suspect]
     Active Substance: PACLITAXEL
     Indication: SQUAMOUS CELL CARCINOMA OF LUNG
     Dosage: 261 MG, 1X/3 WEEKS, INJECTION, INFUSION
     Route: 042
     Dates: start: 20210812, end: 20210812

REACTIONS (1)
  - Guillain-Barre syndrome [Not Recovered/Not Resolved]

NARRATIVE: CASE EVENT DATE: 20210828
